FAERS Safety Report 15770921 (Version 2)
Quarter: 2021Q4

REPORT INFORMATION
  Report Type: Spontaneous
  Country: JP (occurrence: JP)
  Receive Date: 20181228
  Receipt Date: 20211221
  Transmission Date: 20220304
  Serious: Yes (Other)
  Sender: FDA-Public Use
  Company Number: JP-GSKNCCC-A041N00000ZV97BAAT

PATIENT
  Sex: Female

DRUGS (5)
  1. FLUTICASONE FUROATE\VILANTEROL TRIFENATATE [Suspect]
     Active Substance: FLUTICASONE FUROATE\VILANTEROL TRIFENATATE
     Indication: Cough variant asthma
     Dosage: 200 ?G, UNK
     Route: 055
  2. VALPROATE SODIUM [Concomitant]
     Active Substance: VALPROATE SODIUM
     Dosage: UNK
  3. FLUNITRAZEPAM [Concomitant]
     Active Substance: FLUNITRAZEPAM
     Dosage: UNK
  4. RISPERIDONE [Concomitant]
     Active Substance: RISPERIDONE
     Dosage: UNK
  5. FLUVOXAMINE MALEATE [Concomitant]
     Active Substance: FLUVOXAMINE MALEATE
     Dosage: UNK

REACTIONS (10)
  - Suicide attempt [Unknown]
  - Nasopharyngitis [Unknown]
  - Pyrexia [Unknown]
  - Headache [Unknown]
  - Arthralgia [Unknown]
  - Chills [Unknown]
  - Oropharyngeal pain [Unknown]
  - Nasal obstruction [Unknown]
  - Malaise [Unknown]
  - Nausea [Unknown]

NARRATIVE: CASE EVENT DATE: 20181201
